FAERS Safety Report 14723650 (Version 2)
Quarter: 2018Q3

REPORT INFORMATION
  Report Type: Spontaneous
  Country: US (occurrence: US)
  Receive Date: 20180405
  Receipt Date: 20180823
  Transmission Date: 20181010
  Serious: Yes (Other)
  Sender: FDA-Public Use
  Company Number: US-BAYER-2018-065996

PATIENT
  Age: 41 Year
  Sex: Female
  Weight: 68.03 kg

DRUGS (2)
  1. MIRENA [Suspect]
     Active Substance: LEVONORGESTREL
     Dosage: 20 MCG/24HR, CONT
     Route: 015
     Dates: end: 20171120
  2. MIRENA [Suspect]
     Active Substance: LEVONORGESTREL
     Dosage: 20 MCG/24HR, CONT
     Route: 015
     Dates: start: 20180108, end: 20180221

REACTIONS (6)
  - Menorrhagia [Recovered/Resolved]
  - Menorrhagia [None]
  - Asthenia [None]
  - Device expulsion [None]
  - Post procedural haemorrhage [None]
  - Uterine leiomyoma [None]

NARRATIVE: CASE EVENT DATE: 2018
